FAERS Safety Report 24611052 (Version 1)
Quarter: 2024Q4

REPORT INFORMATION
  Report Type: Spontaneous
  Country: AR (occurrence: AR)
  Receive Date: 20241113
  Receipt Date: 20241113
  Transmission Date: 20250115
  Serious: Yes (Hospitalization, Other)
  Sender: NOVO NORDISK
  Company Number: AR-NOVOPROD-1311403

PATIENT
  Age: 60 Year
  Sex: Male

DRUGS (1)
  1. OZEMPIC [Suspect]
     Active Substance: SEMAGLUTIDE
     Indication: Product used for unknown indication
     Dosage: UNK
     Dates: start: 202405, end: 202407

REACTIONS (8)
  - Colitis [Unknown]
  - Renal impairment [Unknown]
  - Blood electrolytes abnormal [Unknown]
  - Gastric ulcer [Unknown]
  - Thirst decreased [Unknown]
  - Decreased appetite [Unknown]
  - Dehydration [Unknown]
  - Diarrhoea [Not Recovered/Not Resolved]
